FAERS Safety Report 9242184 (Version 3)
Quarter: 2013Q2

REPORT INFORMATION
  Report Type: Spontaneous
  Country: US (occurrence: US)
  Receive Date: 20130419
  Receipt Date: 20130621
  Transmission Date: 20140414
  Serious: Yes (Hospitalization, Other)
  Sender: FDA-Public Use
  Company Number: US-BAYER-2013-049568

PATIENT
  Age: 68 Year
  Sex: Male
  Weight: 121.56 kg

DRUGS (31)
  1. XARELTO [Suspect]
     Indication: CEREBROVASCULAR ACCIDENT PROPHYLAXIS
     Dosage: 20 MG, QD
     Route: 048
     Dates: start: 201211, end: 201304
  2. XARELTO [Suspect]
     Indication: ATRIAL FIBRILLATION
  3. ACETYLSALICYLIC ACID({=100 MG) [Interacting]
     Indication: PRODUCT USED FOR UNKNOWN INDICATION
     Dosage: 81 MG, QD
     Route: 048
     Dates: end: 201304
  4. FISH OIL [Concomitant]
     Dosage: 2 G, QD
     Route: 048
  5. FERROUS SULFATE [Concomitant]
     Indication: IRON DEFICIENCY ANAEMIA
     Dosage: 324 MG, TID
     Route: 048
  6. POTASSIUM [Concomitant]
     Indication: PRODUCT USED FOR UNKNOWN INDICATION
     Dosage: 20 MEQ, UNK
     Route: 048
  7. ALPRAZOLAM [Concomitant]
     Indication: ANXIETY
     Dosage: .25 MG, BID
     Route: 048
  8. MAG-OX [Concomitant]
     Indication: MEDICAL DIET
     Dosage: 400 MG, QD
     Route: 048
  9. LIPITOR [Concomitant]
     Indication: BLOOD CHOLESTEROL ABNORMAL
     Dosage: 10 MG, QD
     Route: 048
  10. COREG [Concomitant]
     Dosage: 3.125 MG, BID
     Route: 048
  11. LANOXIN [Concomitant]
     Dosage: .125 MG, QD
     Route: 048
  12. MULTIVITAMINS [Concomitant]
     Dosage: 1 DF, QD
     Route: 048
  13. NIASPAN [Concomitant]
     Dosage: 200 MG, QD
     Route: 048
  14. AMIODARONE [Concomitant]
     Indication: VENTRICULAR TACHYCARDIA
     Dosage: 100 MG, UNK
     Route: 048
  15. AMIODARONE [Concomitant]
     Indication: ATRIAL FIBRILLATION
     Dosage: 200 MG, UNK
     Route: 048
  16. PROTONIX [Concomitant]
     Dosage: 40 MG, QD
     Route: 048
  17. KLOR-CON [Concomitant]
     Dosage: 10 MEQ, QD
     Route: 048
  18. ACCUPRIL [Concomitant]
     Dosage: 5 MG, BID
     Route: 048
  19. ALDACTONE [SPIRONOLACTONE] [Concomitant]
     Dosage: 25 MG, QD
     Route: 048
  20. DEMADEX [Concomitant]
     Dosage: 100 MG, BID
     Route: 048
  21. DEMADEX [Concomitant]
     Dosage: 2 DF, QD
     Route: 048
  22. COENZYME Q10 [Concomitant]
     Dosage: 1 DF, QD
     Route: 048
  23. VITAMIN C [Concomitant]
     Indication: VITAMIN SUPPLEMENTATION
     Dosage: 500 MG, QD
     Route: 048
  24. PACERONE [Concomitant]
     Indication: VENTRICULAR TACHYCARDIA
     Dosage: 200 MG, UNK
     Route: 048
  25. PACERONE [Concomitant]
     Indication: ATRIAL FIBRILLATION
     Route: 048
  26. NIRAVAM [Concomitant]
     Indication: ANXIETY
     Dosage: 2 DF, QD
     Route: 048
  27. NIRAVAM [Concomitant]
     Indication: ANXIETY
     Dosage: .25 MG, BID
     Route: 048
  28. IRON [Concomitant]
     Indication: MINERAL SUPPLEMENTATION
     Dosage: 65 MG, QD
     Route: 048
  29. LASIX [Concomitant]
     Indication: PRODUCT USED FOR UNKNOWN INDICATION
     Dosage: 80 MG, BID
     Route: 048
  30. PRAVACHOL [Concomitant]
     Dosage: 20 MG, QD
     Route: 048
  31. ZANTAC [Concomitant]
     Dosage: 150 MG, BID
     Route: 048

REACTIONS (13)
  - Hypotension [Recovering/Resolving]
  - Glomerular filtration rate decreased [Recovering/Resolving]
  - Gastrointestinal haemorrhage [Recovering/Resolving]
  - Gastrointestinal haemorrhage [Recovering/Resolving]
  - Nocturia [Recovering/Resolving]
  - Weight decreased [Recovering/Resolving]
  - Fatigue [Recovering/Resolving]
  - Tinnitus [Recovering/Resolving]
  - Constipation [Recovering/Resolving]
  - Pruritus [Recovering/Resolving]
  - Paraesthesia [Recovering/Resolving]
  - Temperature intolerance [Recovering/Resolving]
  - Increased tendency to bruise [Recovering/Resolving]
